FAERS Safety Report 4779020-3 (Version None)
Quarter: 2005Q3

REPORT INFORMATION
  Report Type: 
  Country: None (occurrence: None)
  Receive Date: 20050923
  Receipt Date: 20050915
  Transmission Date: 20060218
  Serious: Yes (Hospitalization)
  Sender: FDA-Public Use
  Company Number: 2005068544

PATIENT
  Sex: Female

DRUGS (4)
  1. CELEBREX [Suspect]
     Indication: BACK PAIN
     Dosage: ORAL
     Route: 048
     Dates: start: 20040801, end: 20050801
  2. FLUPIRTINE (FLUPIRTINE) [Suspect]
     Indication: BACK PAIN
     Dosage: ORAL
     Route: 048
     Dates: start: 20040801
  3. KATADOLON (FLUPIRTINE MALEATE) [Concomitant]
  4. TENOXICAM (TENOXICAM) [Concomitant]

REACTIONS (5)
  - BACK PAIN [None]
  - BLISTER [None]
  - DERMATITIS BULLOUS [None]
  - HYPERSENSITIVITY [None]
  - URTICARIA [None]
